FAERS Safety Report 6910197-7 (Version None)
Quarter: 2010Q3

REPORT INFORMATION
  Report Type: 
  Country: None (occurrence: None)
  Receive Date: 20100806
  Receipt Date: 20100726
  Transmission Date: 20110219
  Serious: Yes (Hospitalization)
  Sender: FDA-Public Use
  Company Number: CA-JNJFOC-20100708187

PATIENT
  Sex: Male
  Weight: 95 kg

DRUGS (3)
  1. REMICADE [Suspect]
     Indication: PSORIATIC ARTHROPATHY
     Route: 042
  2. SYNTHROID [Concomitant]
  3. CELEBREX [Concomitant]

REACTIONS (2)
  - CARDIAC ARREST [None]
  - CORONARY ARTERY OCCLUSION [None]
